FAERS Safety Report 13984092 (Version 5)
Quarter: 2018Q1

REPORT INFORMATION
  Report Type: Report from Study
  Country: US (occurrence: US)
  Receive Date: 20170918
  Receipt Date: 20180117
  Transmission Date: 20180508
  Serious: Yes (Hospitalization)
  Sender: FDA-Public Use
  Company Number: US-ASTELLAS-2017US037226

PATIENT
  Age: 58 Year
  Sex: Female

DRUGS (1)
  1. SOLIFENACIN [Suspect]
     Active Substance: SOLIFENACIN
     Indication: URINARY INCONTINENCE
     Route: 048
     Dates: start: 20170602

REACTIONS (8)
  - Product use in unapproved indication [Unknown]
  - Drug hypersensitivity [Recovering/Resolving]
  - Urinary incontinence [Recovered/Resolved]
  - Product supply issue [Unknown]
  - Fall [Recovering/Resolving]
  - Hip fracture [Recovering/Resolving]
  - Drug dose omission [Unknown]
  - Gastrointestinal fungal infection [Recovering/Resolving]

NARRATIVE: CASE EVENT DATE: 201706
